FAERS Safety Report 6871311-5 (Version None)
Quarter: 2010Q3

REPORT INFORMATION
  Report Type: 
  Country: None (occurrence: None)
  Receive Date: 20100723
  Receipt Date: 20100715
  Transmission Date: 20110219
  Serious: Yes (Hospitalization, Disabling)
  Sender: FDA-Public Use
  Company Number: GB-PFIZER INC-2010083733

PATIENT
  Age: 61 Year
  Sex: Male
  Weight: 71 kg

DRUGS (7)
  1. ATORVASTATIN CALCIUM [Suspect]
     Indication: TRANSIENT ISCHAEMIC ATTACK
     Dosage: 20 MG, UNK
     Route: 048
     Dates: start: 20100119, end: 20100406
  2. ACETYLSALICYLIC ACID [Concomitant]
     Dosage: 75 MG, UNK
     Dates: start: 20090501
  3. FINASTERIDE [Concomitant]
     Dosage: 5 MG, 1X/DAY
     Dates: start: 20090501
  4. IRBESARTAN [Concomitant]
     Indication: HYPERTENSION
     Dosage: 300 MG, 1X/DAY
  5. OMEPRAZOLE [Concomitant]
     Dosage: 20 MG, 1X/DAY
     Dates: start: 20090501
  6. OXYBUTYNIN [Concomitant]
     Dosage: 2.5 MG, UNK
     Dates: start: 20090501
  7. PREDNISOLONE [Concomitant]
     Indication: POLYMYALGIA RHEUMATICA
     Dosage: UNK

REACTIONS (3)
  - DYSARTHRIA [None]
  - HYPOTENSION [None]
  - SYNCOPE [None]
